FAERS Safety Report 4949269-5 (Version None)
Quarter: 2006Q1

REPORT INFORMATION
  Report Type: 
  Country: None (occurrence: None)
  Receive Date: 20060315
  Receipt Date: 20060302
  Transmission Date: 20060701
  Serious: Yes (Other)
  Sender: FDA-Public Use
  Company Number: 2006033297

PATIENT
  Sex: Male
  Weight: 90.2658 kg

DRUGS (5)
  1. VIAGRA [Suspect]
     Indication: ERECTILE DYSFUNCTION
     Dosage: (AS NECESSARY),
  2. DETROL LA [Suspect]
     Indication: NOCTURIA
  3. DETROL [Suspect]
     Indication: NOCTURIA
  4. LEVITRA [Suspect]
     Indication: ERECTILE DYSFUNCTION
  5. VITAMINS (VITAMINS) [Concomitant]

REACTIONS (11)
  - ABASIA [None]
  - ANOREXIA [None]
  - ANORGASMIA [None]
  - BACK INJURY [None]
  - FALL [None]
  - JOINT INJURY [None]
  - POLLAKIURIA [None]
  - SLEEP DISORDER [None]
  - VISION BLURRED [None]
  - VISUAL ACUITY REDUCED [None]
  - WEIGHT DECREASED [None]
